FAERS Safety Report 8074596-5 (Version None)
Quarter: 2012Q1

REPORT INFORMATION
  Report Type: 
  Country: None (occurrence: None)
  Receive Date: 20120123
  Receipt Date: 20120112
  Transmission Date: 20120608
  Serious: Yes (Other)
  Sender: FDA-Public Use
  Company Number: AUR-APL-2011-06223

PATIENT
  Age: 17 Year
  Sex: Female
  Weight: 56.6 kg

DRUGS (5)
  1. METHYLPREDNISOLONE SODIUM SUCCINATE [Suspect]
     Indication: JUVENILE ARTHRITIS
     Dosage: 3.5714 MG (100 MG, 1 IN 4 WK), INTRAVENOUS
     Route: 042
  2. INFLIXIMAB (INFLIXIMAB) [Suspect]
     Indication: JUVENILE ARTHRITIS
     Dosage: 14.2857 MG (400 MG, 1 IN 4 WK) INTRAVENOUS
     Route: 042
  3. RITUXIMAB (RITUXIMAB) [Suspect]
     Indication: JUVENILE ARTHRITIS
     Dosage: 1000 MG
     Dates: start: 20100521
  4. HYDROXYCHLOROQUINE PHOSPHATE (HYDROXYCHLOROQUINE) [Suspect]
     Indication: JUVENILE ARTHRITIS
     Dosage: 200 MG (200 MG, 1 IN 1 D), ORAL
     Route: 048
  5. MELOXICAM [Suspect]
     Indication: JUVENILE ARTHRITIS
     Dosage: 15 MG (15 MG, 1 IN 1 D), ORAL
     Route: 048

REACTIONS (1)
  - PULMONARY MYCOSIS [None]
